FAERS Safety Report 6306752-8 (Version None)
Quarter: 2009Q3

REPORT INFORMATION
  Report Type: 
  Country: None (occurrence: None)
  Receive Date: 20090812
  Receipt Date: 20090804
  Transmission Date: 20100115
  Serious: Yes (Other)
  Sender: FDA-Public Use
  Company Number: US-JNJFOC-20090801757

PATIENT
  Age: 64 Year
  Sex: Male
  Weight: 102.06 kg

DRUGS (13)
  1. EXTRA STRENGTH TYLENOL [Suspect]
     Route: 048
  2. EXTRA STRENGTH TYLENOL [Suspect]
     Indication: ARTHRALGIA
     Dosage: 1000 MG 2-3 TIMES DAILY
     Route: 048
  3. SYNTHROID [Concomitant]
     Indication: THYROID DISORDER
  4. VASOTEC [Concomitant]
     Indication: HYPERTENSION
  5. SINGULAIR [Concomitant]
     Indication: MULTIPLE ALLERGIES
  6. TOPROL-XL [Concomitant]
     Indication: HYPERTENSION
  7. SIMVASTATIN [Concomitant]
     Indication: BLOOD CHOLESTEROL INCREASED
  8. LOVAZA [Concomitant]
     Indication: CARDIAC DISORDER
  9. BILBERRY [Concomitant]
     Indication: EYE DISORDER
  10. GLUCOSAMINE + CHONDROITIN COMBO [Concomitant]
     Indication: DRUG THERAPY
  11. PLAVIX [Concomitant]
     Indication: ANTICOAGULANT THERAPY
  12. MOBIC [Concomitant]
     Indication: ARTHRALGIA
  13. ASPIRIN [Concomitant]
     Indication: PROPHYLAXIS

REACTIONS (2)
  - HAEMATOCHEZIA [None]
  - INTENTIONAL DRUG MISUSE [None]
